FAERS Safety Report 6160481-2 (Version None)
Quarter: 2009Q2

REPORT INFORMATION
  Report Type: 
  Country: None (occurrence: None)
  Receive Date: 20090420
  Receipt Date: 20090415
  Transmission Date: 20091009
  Serious: Yes (Death, Life-Threatening, Hospitalization)
  Sender: FDA-Public Use
  Company Number: DE-ABBOTT-09P-062-0568409-00

PATIENT
  Sex: Female
  Weight: 72 kg

DRUGS (4)
  1. HUMIRA [Suspect]
     Indication: RHEUMATOID ARTHRITIS
     Route: 058
     Dates: start: 20060201, end: 20090101
  2. ARAVA [Concomitant]
     Indication: RHEUMATOID ARTHRITIS
     Route: 048
     Dates: start: 20000701, end: 20090101
  3. SALOFALK [Concomitant]
     Indication: DIVERTICULITIS
     Dates: start: 20081201, end: 20090201
  4. SALOFALK [Concomitant]
     Indication: COLITIS

REACTIONS (4)
  - COLITIS [None]
  - DIVERTICULITIS [None]
  - MULTI-ORGAN FAILURE [None]
  - SEPSIS [None]
